FAERS Safety Report 24352892 (Version 1)
Quarter: 2024Q3

REPORT INFORMATION
  Report Type: Spontaneous
  Country: JP (occurrence: JP)
  Receive Date: 20240923
  Receipt Date: 20240923
  Transmission Date: 20241017
  Serious: No
  Sender: ROCHE
  Company Number: JP-CHUGAI-2023043824

PATIENT
  Age: 7 Decade
  Sex: Female

DRUGS (2)
  1. HERCEPTIN [Suspect]
     Active Substance: TRASTUZUMAB
     Indication: Rectal cancer
     Dosage: 8 MILLIGRAM, ONCE/3WEEKS
     Route: 065
     Dates: start: 20231130, end: 20231130
  2. PERJETA [Suspect]
     Active Substance: PERTUZUMAB
     Indication: Rectal cancer
     Dosage: 840 MILLIGRAM, ONCE/3WEEKS
     Route: 065
     Dates: start: 20231130, end: 20231130

REACTIONS (1)
  - Infusion related reaction [Recovered/Resolved]

NARRATIVE: CASE EVENT DATE: 20231130
